FAERS Safety Report 5930009-8 (Version None)
Quarter: 2008Q4

REPORT INFORMATION
  Report Type: 
  Country: None (occurrence: None)
  Receive Date: 20081024
  Receipt Date: 20081013
  Transmission Date: 20090506
  Serious: Yes (Other)
  Sender: FDA-Public Use
  Company Number: ES-PFIZER INC-2008085912

PATIENT
  Age: 52 Year
  Sex: Male

DRUGS (2)
  1. LYRICA [Suspect]
     Indication: ANXIETY
     Route: 048
  2. VENLAFAXINE HCL [Concomitant]
     Dosage: DAILY DOSE:150MG
     Route: 048

REACTIONS (2)
  - AREFLEXIA [None]
  - SOMNOLENCE [None]
